FAERS Safety Report 12432008 (Version 2)
Quarter: 2016Q2

REPORT INFORMATION
  Report Type: Report from Study
  Country: US (occurrence: US)
  Receive Date: 20160603
  Receipt Date: 20160615
  Transmission Date: 20160815
  Serious: Yes (Other)
  Sender: FDA-Public Use
  Company Number: US-009507513-0906USA04157

PATIENT

DRUGS (2)
  1. HEXADROL [Suspect]
     Active Substance: DEXAMETHASONE
     Indication: PLASMA CELL MYELOMA
     Dosage: 20 MG, QW
     Route: 048
  2. ANAKINRA [Concomitant]
     Active Substance: ANAKINRA
     Indication: PLASMA CELL MYELOMA
     Dosage: 100 MG, QD
     Route: 058

REACTIONS (1)
  - Myocardial infarction [Unknown]
